FAERS Safety Report 5322893-6 (Version None)
Quarter: 2007Q2

REPORT INFORMATION
  Report Type: 
  Country: None (occurrence: None)
  Receive Date: 20070511
  Receipt Date: 20070503
  Transmission Date: 20071010
  Serious: Yes (Other)
  Sender: FDA-Public Use
  Company Number: US-PFIZER INC-2007036715

PATIENT
  Sex: Female
  Weight: 59.09 kg

DRUGS (3)
  1. CHANTIX [Suspect]
     Indication: SMOKING CESSATION THERAPY
  2. XANAX [Suspect]
     Indication: SLEEP DISORDER
  3. ANALGESICS [Suspect]

REACTIONS (5)
  - BACK PAIN [None]
  - INSOMNIA [None]
  - NAUSEA [None]
  - NEOPLASM [None]
  - VOMITING [None]
